FAERS Safety Report 12872556 (Version 1)
Quarter: 2016Q4

REPORT INFORMATION
  Report Type: Spontaneous
  Country: CH (occurrence: CH)
  Receive Date: 20161021
  Receipt Date: 20161021
  Transmission Date: 20170207
  Serious: Yes (Hospitalization)
  Sender: FDA-Public Use
  Company Number: CH-BRISTOL-MYERS SQUIBB COMPANY-BMS-2016-087359

PATIENT
  Age: 68 Year
  Sex: Female

DRUGS (7)
  1. SAROTEN [Suspect]
     Active Substance: AMITRIPTYLINE
     Indication: DEREALISATION
     Dosage: 25 MG, UNK
     Route: 048
     Dates: start: 20151211, end: 20151216
  2. ABILIFY [Suspect]
     Active Substance: ARIPIPRAZOLE
     Dosage: 10 MG, UNK
     Route: 048
     Dates: start: 20151212, end: 20151228
  3. SAROTEN [Suspect]
     Active Substance: AMITRIPTYLINE
     Dosage: 50 MG, UNK
     Route: 048
     Dates: start: 20151220, end: 20151228
  4. ABILIFY [Suspect]
     Active Substance: ARIPIPRAZOLE
     Indication: DEREALISATION
     Dosage: 5 MG, QD
     Route: 048
     Dates: start: 20151207, end: 20151211
  5. SAROTEN [Suspect]
     Active Substance: AMITRIPTYLINE
     Dosage: 25 MG, UNK
     Route: 048
     Dates: start: 20151229, end: 20160111
  6. INDERAL [Suspect]
     Active Substance: PROPRANOLOL HYDROCHLORIDE
     Indication: DEREALISATION
     Dosage: 20 MG, UNK
     Route: 048
     Dates: start: 20151209, end: 20151228
  7. ABILIFY [Suspect]
     Active Substance: ARIPIPRAZOLE
     Dosage: 5 MG, QD
     Route: 048
     Dates: start: 20151229, end: 20160119

REACTIONS (5)
  - Limb discomfort [Recovered/Resolved]
  - Product use issue [Unknown]
  - Musculoskeletal stiffness [Recovered/Resolved]
  - Restlessness [Recovered/Resolved]
  - Gait disturbance [Recovered/Resolved]

NARRATIVE: CASE EVENT DATE: 20151228
